FAERS Safety Report 9333945 (Version 1)
Quarter: 2013Q2

REPORT INFORMATION
  Report Type: Spontaneous
  Country: US (occurrence: US)
  Receive Date: 20130606
  Receipt Date: 20130606
  Transmission Date: 20140414
  Serious: No
  Sender: FDA-Public Use
  Company Number: US-AMGEN-USASP2012081429

PATIENT
  Age: 75 Year
  Sex: Female
  Weight: 115.2 kg

DRUGS (9)
  1. PROLIA [Suspect]
     Indication: OSTEOPOROSIS POSTMENOPAUSAL
     Dosage: UNK UNK, Q6MO
     Route: 058
     Dates: start: 20120618, end: 20120618
  2. VIVELLE DOT [Concomitant]
     Indication: MENOPAUSE
     Dosage: 0.025 MG, 2 TIMES/WK
     Route: 062
     Dates: start: 20040517
  3. PROGESTERONE [Concomitant]
     Indication: MENOPAUSE
     Dosage: 50 MG, QHS
     Route: 048
     Dates: start: 19981124
  4. ANTIVERT                           /00007101/ [Concomitant]
     Indication: MIGRAINE
     Dosage: UNK UNK, PRN
     Route: 048
  5. ANTIVERT                           /00007101/ [Concomitant]
     Indication: DIZZINESS
  6. MULTIVITAMIN                       /00097801/ [Concomitant]
     Indication: SUPPLEMENTATION THERAPY
     Dosage: UNK UNK, QD
     Route: 048
  7. ADVIL                              /00044201/ [Concomitant]
     Indication: PAIN
     Dosage: 200 MG, PRN
     Route: 048
  8. VITAMIN D3 [Concomitant]
     Dosage: 1000 IU, QD
  9. HYDROCORTISONE [Concomitant]
     Dosage: UNK

REACTIONS (3)
  - Diarrhoea [Recovered/Resolved]
  - Bone pain [Recovered/Resolved]
  - Myalgia [Recovered/Resolved]
